FAERS Safety Report 24930386 (Version 2)
Quarter: 2025Q1

REPORT INFORMATION
  Report Type: Spontaneous
  Country: US (occurrence: US)
  Receive Date: 20250205
  Receipt Date: 20250221
  Transmission Date: 20250409
  Serious: Yes (Hospitalization, Other)
  Sender: EISAI
  Company Number: US-Eisai-EC-2025-183316

PATIENT
  Age: 76 Year
  Sex: Female
  Weight: 53 kg

DRUGS (4)
  1. LECANEMAB [Suspect]
     Active Substance: LECANEMAB
     Indication: Dementia Alzheimer^s type
     Dosage: DOSE UNKNOWN.
     Dates: start: 20241003, end: 2024
  2. LECANEMAB [Suspect]
     Active Substance: LECANEMAB
     Dosage: DOSE UNKNOWN
     Dates: start: 2024, end: 2024
  3. LECANEMAB [Suspect]
     Active Substance: LECANEMAB
     Dosage: DOSE UNKNOWN
     Dates: start: 202412, end: 202412
  4. LECANEMAB [Suspect]
     Active Substance: LECANEMAB
     Dosage: DOSE UNKNOWN.
     Dates: start: 20241216, end: 20241216

REACTIONS (6)
  - Cerebellar infarction [Recovering/Resolving]
  - Encephalopathy [Unknown]
  - Amyloid related imaging abnormality-microhaemorrhages and haemosiderin deposits [Unknown]
  - Amyloid related imaging abnormality-oedema/effusion [Unknown]
  - Memory impairment [Unknown]
  - Agitation [Unknown]

NARRATIVE: CASE EVENT DATE: 20241202
